FAERS Safety Report 15263574 (Version 1)
Quarter: 2018Q3

REPORT INFORMATION
  Report Type: Spontaneous
  Country: US (occurrence: US)
  Receive Date: 20180810
  Receipt Date: 20180810
  Transmission Date: 20181010
  Serious: No
  Sender: FDA-Public Use
  Company Number: US-ALKEM LABORATORIES LIMITED-US-ALKEM-2018-01127

PATIENT
  Age: 61 Year
  Sex: Female

DRUGS (1)
  1. LAMOTRIGINE. [Suspect]
     Active Substance: LAMOTRIGINE
     Indication: HEADACHE
     Dosage: UNK
     Route: 065

REACTIONS (1)
  - Drug ineffective [Unknown]
